FAERS Safety Report 7159357-3 (Version None)
Quarter: 2010Q4

REPORT INFORMATION
  Report Type: 
  Country: None (occurrence: None)
  Receive Date: 20101214
  Receipt Date: 20100823
  Transmission Date: 20110411
  Serious: No
  Sender: FDA-Public Use
  Company Number: US-ASTRAZENECA-2010SE39670

PATIENT
  Age: 59 Year
  Sex: Female

DRUGS (7)
  1. CRESTOR [Suspect]
     Indication: BLOOD TRIGLYCERIDES INCREASED
     Route: 048
  2. TRILIPIX [Suspect]
     Indication: BLOOD TRIGLYCERIDES INCREASED
     Dosage: 45 MCG
     Route: 048
     Dates: start: 20100601, end: 20100601
  3. NIACIN [Suspect]
     Indication: BLOOD TRIGLYCERIDES INCREASED
     Dosage: OVER THE COUNTER
     Dates: start: 20100601, end: 20100701
  4. OLMESARTAN MEDOXOMIL [Concomitant]
     Indication: HYPERTENSION
     Route: 048
  5. HYDROCHLOROTHIAZIDE [Concomitant]
     Indication: HYPERTENSION
  6. LEKOVIT CA [Concomitant]
  7. FISH OIL [Concomitant]

REACTIONS (3)
  - GLOMERULAR FILTRATION RATE DECREASED [None]
  - OEDEMA PERIPHERAL [None]
  - RENAL IMPAIRMENT [None]
